FAERS Safety Report 12973991 (Version 1)
Quarter: 2016Q4

REPORT INFORMATION
  Report Type: Spontaneous
  Country: CO (occurrence: CO)
  Receive Date: 20161124
  Receipt Date: 20161124
  Transmission Date: 20170207
  Serious: Yes (Other)
  Sender: FDA-Public Use
  Company Number: CO-BAXTER-2016BAX058910

PATIENT
  Age: 56 Year
  Sex: Female

DRUGS (3)
  1. ENALAPRIL [Concomitant]
     Active Substance: ENALAPRIL
     Indication: HYPERTENSION
     Route: 065
  2. DOBUTREX [Suspect]
     Active Substance: DOBUTAMINE HYDROCHLORIDE
     Indication: STRESS ECHOCARDIOGRAM
     Route: 065
  3. DOBUTREX [Suspect]
     Active Substance: DOBUTAMINE HYDROCHLORIDE
     Indication: OFF LABEL USE

REACTIONS (2)
  - Off label use [None]
  - Stress cardiomyopathy [Recovered/Resolved]
